FAERS Safety Report 10230274 (Version 3)
Quarter: 2014Q2

REPORT INFORMATION
  Report Type: Spontaneous
  Country: US (occurrence: US)
  Receive Date: 20140611
  Receipt Date: 20140627
  Transmission Date: 20141212
  Serious: Yes (Hospitalization, Other)
  Sender: FDA-Public Use
  Company Number: US-BAXTER-2014BAX028794

PATIENT
  Sex: Male

DRUGS (1)
  1. DIANEAL LOW CALCIUM [Suspect]
     Indication: PERITONEAL DIALYSIS
     Route: 033

REACTIONS (6)
  - Localised infection [Unknown]
  - Osteomyelitis [Unknown]
  - Post procedural complication [Unknown]
  - Fall [Recovered/Resolved]
  - Limb injury [Unknown]
  - Animal bite [Unknown]
